FAERS Safety Report 9212828 (Version 1)
Quarter: 2013Q2

REPORT INFORMATION
  Report Type: Spontaneous
  Country: US (occurrence: None)
  Receive Date: 20130403
  Receipt Date: 20130403
  Transmission Date: 20140414
  Serious: Yes (Other)
  Sender: FDA-Public Use
  Company Number: None

PATIENT
  Age: 76 Year
  Sex: Male

DRUGS (1)
  1. AFINITOR [Suspect]
     Dosage: 5MG DAILY PO
     Route: 048
     Dates: start: 20120605, end: 20130320

REACTIONS (1)
  - Vision blurred [None]
